FAERS Safety Report 14797317 (Version 1)
Quarter: 2018Q2

REPORT INFORMATION
  Report Type: Report from Study
  Country: ES (occurrence: ES)
  Receive Date: 20180424
  Receipt Date: 20180424
  Transmission Date: 20180711
  Serious: Yes (Other)
  Sender: FDA-Public Use
  Company Number: ES-UCBSA-2018016938

PATIENT
  Age: 39 Year
  Sex: Female

DRUGS (2)
  1. LACOSAMIDE. [Suspect]
     Active Substance: LACOSAMIDE
     Dosage: UNK
     Dates: start: 2016
  2. LACOSAMIDE. [Suspect]
     Active Substance: LACOSAMIDE
     Indication: EPILEPSY
     Dosage: UNK
     Dates: start: 2012, end: 2012

REACTIONS (9)
  - Seizure [Unknown]
  - Feeling abnormal [Unknown]
  - Dysarthria [Unknown]
  - Dizziness [Unknown]
  - Petit mal epilepsy [Unknown]
  - Insomnia [Unknown]
  - Memory impairment [Unknown]
  - Decreased appetite [Unknown]
  - Mood altered [Unknown]

NARRATIVE: CASE EVENT DATE: 2012
